FAERS Safety Report 8410604 (Version 4)
Quarter: 2013Q4

REPORT INFORMATION
  Report Type: Spontaneous
  Country: US (occurrence: None)
  Receive Date: 20111227
  Receipt Date: 20131226
  Transmission Date: 20140711
  Serious: Yes (Other)
  Sender: FDA-Public Use
  Company Number: PHEH2011US010090

PATIENT
  Age: 45 Year
  Sex: Male
  Weight: 109 kg

DRUGS (1)
  1. GILENYA [Suspect]
     Indication: MULTIPLE SCLEROSIS
     Route: 048
     Dates: start: 20110923, end: 20120803

REACTIONS (7)
  - Furuncle [None]
  - Nodule [None]
  - Hypoaesthesia [None]
  - Chills [None]
  - Muscular weakness [None]
  - Vision blurred [None]
  - Dizziness [None]
